FAERS Safety Report 7749897-8 (Version None)
Quarter: 2011Q3

REPORT INFORMATION
  Report Type: 
  Country: None (occurrence: None)
  Receive Date: 20110907
  Receipt Date: 20110822
  Transmission Date: 20111222
  Serious: Yes (Hospitalization)
  Sender: FDA-Public Use
  Company Number: DSA_46801_2011

PATIENT
  Sex: Female

DRUGS (3)
  1. DIAZEPAM [Concomitant]
  2. WELLBUTRIN XL [Suspect]
     Indication: PRODUCT USED FOR UNKNOWN INDICATION
     Dosage: (10 TABLETS 1X, NOT THE PRESCRIBED AMOUNT ORAL) ; (DF ORAL)
     Route: 048
     Dates: start: 20091009, end: 20091009
  3. WELLBUTRIN XL [Suspect]
     Indication: PRODUCT USED FOR UNKNOWN INDICATION
     Dosage: (10 TABLETS 1X, NOT THE PRESCRIBED AMOUNT ORAL) ; (DF ORAL)
     Route: 048
     Dates: start: 20080901

REACTIONS (27)
  - PUPILLARY REFLEX IMPAIRED [None]
  - BLOOD PH DECREASED [None]
  - PCO2 DECREASED [None]
  - PAIN [None]
  - PO2 INCREASED [None]
  - SUICIDE ATTEMPT [None]
  - BLOOD SODIUM INCREASED [None]
  - BLOOD BICARBONATE DECREASED [None]
  - DRUG SCREEN POSITIVE [None]
  - PROTHROMBIN TIME PROLONGED [None]
  - ANXIETY [None]
  - EMOTIONAL DISTRESS [None]
  - DYSARTHRIA [None]
  - MYOCARDIAL INFARCTION [None]
  - RED BLOOD CELL COUNT DECREASED [None]
  - GRANULOCYTE COUNT INCREASED [None]
  - CONVULSION [None]
  - SINUS TACHYCARDIA [None]
  - BLOOD GLUCOSE INCREASED [None]
  - VOMITING [None]
  - CARDIAC DISORDER [None]
  - HAEMOGLOBIN DECREASED [None]
  - LYMPHOCYTE PERCENTAGE DECREASED [None]
  - INTENTIONAL OVERDOSE [None]
  - TROPONIN INCREASED [None]
  - ANION GAP INCREASED [None]
  - WHITE BLOOD CELL COUNT INCREASED [None]
